FAERS Safety Report 13060666 (Version 1)
Quarter: 2016Q4

REPORT INFORMATION
  Report Type: Spontaneous
  Country: US (occurrence: US)
  Receive Date: 20161224
  Receipt Date: 20161224
  Transmission Date: 20170207
  Serious: No
  Sender: FDA-Public Use
  Company Number: US-CELGENEUS-USA-2016124825

PATIENT
  Age: 78 Year
  Sex: Female

DRUGS (1)
  1. THALOMID [Suspect]
     Active Substance: THALIDOMIDE
     Indication: PLASMA CELL MYELOMA
     Dosage: 50MG
     Route: 048
     Dates: start: 20161121

REACTIONS (2)
  - Headache [Unknown]
  - Gastric disorder [Unknown]

NARRATIVE: CASE EVENT DATE: 20161214
